FAERS Safety Report 8842730 (Version 1)
Quarter: 2012Q4

REPORT INFORMATION
  Report Type: 
  Country: US (occurrence: US)
  Receive Date: 20121016
  Receipt Date: 20121016
  Transmission Date: 20130627
  Serious: No
  Sender: FDA-Public Use
  Company Number: US-VERTEX PHARMACEUTICAL INC.-2012-022887

PATIENT

DRUGS (6)
  1. VX-950 [Suspect]
     Indication: HEPATITIS C
     Dosage: UNK
     Route: 048
  2. PEGINTERFERON ALFA-2B [Suspect]
     Dosage: 150 ?g/week
     Route: 058
  3. RIBAVIRIN [Suspect]
     Route: 048
  4. MIRALAX                            /00754501/ [Concomitant]
  5. FISH OIL [Concomitant]
     Route: 048
  6. VITAMIN D3 [Concomitant]
     Route: 048

REACTIONS (7)
  - Dyspnoea [Unknown]
  - Abdominal distension [Unknown]
  - Melaena [Unknown]
  - Decreased appetite [Unknown]
  - Abdominal pain upper [Unknown]
  - Asthenia [Unknown]
  - Anaemia [Unknown]
